FAERS Safety Report 5269647-7 (Version None)
Quarter: 2007Q1

REPORT INFORMATION
  Report Type: 
  Country: None (occurrence: None)
  Receive Date: 20070320
  Receipt Date: 20070314
  Transmission Date: 20070707
  Serious: Yes (Other)
  Sender: FDA-Public Use
  Company Number: US-AVENTIS-200711444US

PATIENT
  Age: 51 Year
  Sex: Female

DRUGS (12)
  1. AMARYL [Suspect]
     Dates: start: 20061202
  2. RISPERDAL [Suspect]
     Dosage: DOSE: UNK
  3. PERPHENAZINE [Suspect]
     Dosage: DOSE: UNK
  4. CLINDAMYCIN [Suspect]
     Dosage: DOSE: UNK
     Dates: end: 20070302
  5. METFORMIN HCL [Concomitant]
     Dosage: DOSE: UNK
  6. METFORMIN HCL [Concomitant]
     Dosage: DOSE: UNK
  7. ARTANE [Concomitant]
     Dosage: DOSE: 2 TABLETS
  8. ARTANE [Concomitant]
     Dosage: DOSE: 3 TABLETS
  9. RAZADYNE [Concomitant]
     Dosage: DOSE: UNK
  10. LISINOPRIL [Concomitant]
     Dosage: DOSE: UNK
  11. PROZAC [Concomitant]
     Dosage: DOSE: UNK
  12. CORICIDIN                          /00070002/ [Concomitant]
     Dosage: DOSE: UNK

REACTIONS (5)
  - DRUG INTERACTION [None]
  - HALLUCINATION [None]
  - HALLUCINATION, AUDITORY [None]
  - HUNGER [None]
  - NASOPHARYNGITIS [None]
